FAERS Safety Report 22237671 (Version 1)
Quarter: 2023Q2

REPORT INFORMATION
  Report Type: Report from Study
  Country: CN (occurrence: CN)
  Receive Date: 20230421
  Receipt Date: 20230421
  Transmission Date: 20230722
  Serious: Yes (Other)
  Sender: FDA-Public Use
  Company Number: CN-SUN PHARMACEUTICAL INDUSTRIES LTD-2023R1-384934

PATIENT
  Age: 68 Year
  Sex: Female

DRUGS (2)
  1. DOXYCYCLINE [Suspect]
     Active Substance: DOXYCYCLINE
     Indication: Boutonneuse fever
     Dosage: 100 MILLIGRAM, BID
     Route: 048
  2. METHYLPREDNISOLONE [Concomitant]
     Active Substance: METHYLPREDNISOLONE
     Indication: Boutonneuse fever
     Dosage: 0.7 MILLIGRAM/KILOGRAM, DAILY
     Route: 042

REACTIONS (7)
  - Cardiac failure [Unknown]
  - Respiratory failure [Unknown]
  - Acute kidney injury [Unknown]
  - Haemorrhage intracranial [Unknown]
  - Arrhythmia [Unknown]
  - Gangrene [Unknown]
  - Deep vein thrombosis [Unknown]
